FAERS Safety Report 16742291 (Version 1)
Quarter: 2019Q3

REPORT INFORMATION
  Report Type: Spontaneous
  Country: DE (occurrence: DE)
  Receive Date: 20190826
  Receipt Date: 20190826
  Transmission Date: 20191005
  Serious: Yes (Other)
  Sender: FDA-Public Use
  Company Number: DE-MYLANLABS-2019M1077193

PATIENT
  Age: 35 Year
  Sex: Male

DRUGS (1)
  1. CLIFT [GLATIRAMER ACETATE] [Suspect]
     Active Substance: GLATIRAMER ACETATE
     Indication: PRODUCT USED FOR UNKNOWN INDICATION
     Dosage: 20 MILLIGRAM PER MILLILITRE
     Route: 058
     Dates: start: 20190812, end: 20190813

REACTIONS (2)
  - Pain in extremity [Recovering/Resolving]
  - Gait disturbance [Recovering/Resolving]

NARRATIVE: CASE EVENT DATE: 20190812
